FAERS Safety Report 19155431 (Version 2)
Quarter: 2021Q2

REPORT INFORMATION
  Report Type: Not Available
  Country: AD (occurrence: None)
  Receive Date: 20210419
  Receipt Date: 20210420
  Transmission Date: 20210717
  Serious: Yes (Other)
  Sender: FDA-Public Use
  Company Number: US-AKORN-165812

PATIENT
  Age: 57 Year
  Sex: Female

DRUGS (1)
  1. MYORISAN [Suspect]
     Active Substance: ISOTRETINOIN

REACTIONS (2)
  - Depression [Unknown]
  - Blood triglycerides increased [Unknown]
